FAERS Safety Report 16311081 (Version 1)
Quarter: 2019Q2

REPORT INFORMATION
  Report Type: Spontaneous
  Country: US (occurrence: US)
  Receive Date: 20190514
  Receipt Date: 20190514
  Transmission Date: 20190711
  Serious: Yes (Other)
  Sender: FDA-Public Use
  Company Number: US-GLAXOSMITHKLINE-US2019083988

PATIENT
  Sex: Female

DRUGS (1)
  1. BENLYSTA [Suspect]
     Active Substance: BELIMUMAB
     Indication: PRODUCT USED FOR UNKNOWN INDICATION
     Dosage: UNK
     Route: 058
     Dates: start: 2018

REACTIONS (11)
  - Mobility decreased [Unknown]
  - Inflammation [Unknown]
  - Systemic lupus erythematosus [Unknown]
  - Laboratory test abnormal [Unknown]
  - Arthralgia [Unknown]
  - Pyrexia [Unknown]
  - Drug ineffective [Unknown]
  - General physical health deterioration [Unknown]
  - Erythema [Unknown]
  - Pain [Unknown]
  - Joint swelling [Unknown]
